FAERS Safety Report 16883479 (Version 3)
Quarter: 2022Q1

REPORT INFORMATION
  Report Type: Report from Study
  Country: US (occurrence: None)
  Receive Date: 20191004
  Receipt Date: 20220208
  Transmission Date: 20220424
  Serious: Yes (Death, Hospitalization, Other)
  Sender: FDA-Public Use
  Company Number: US-ROCHE-2428714

PATIENT
  Age: 75 Year
  Sex: Female
  Weight: 75 kg

DRUGS (3)
  1. ATEZOLIZUMAB [Suspect]
     Active Substance: ATEZOLIZUMAB
     Indication: Biliary neoplasm
     Route: 042
     Dates: start: 20180814
  2. ATEZOLIZUMAB [Suspect]
     Active Substance: ATEZOLIZUMAB
     Indication: Cholangiocarcinoma
  3. COBIMETINIB [Suspect]
     Active Substance: COBIMETINIB
     Indication: Biliary neoplasm
     Dosage: 0N 23/AUG/2018, LAST DOSE OF COBIMETINIB PRIOR TO SAE.
     Route: 048
     Dates: start: 20180814

REACTIONS (9)
  - Disease progression [Fatal]
  - Ascites [Unknown]
  - Nausea [Unknown]
  - Constipation [Unknown]
  - Confusional state [Unknown]
  - Dehydration [Unknown]
  - Vomiting [Unknown]
  - Abdominal pain [Unknown]
  - Administration site reaction [Fatal]

NARRATIVE: CASE EVENT DATE: 20180827
